FAERS Safety Report 9363025 (Version 1)
Quarter: 2013Q2

REPORT INFORMATION
  Report Type: Spontaneous
  Country: US (occurrence: None)
  Receive Date: 20130621
  Receipt Date: 20130621
  Transmission Date: 20140414
  Serious: No
  Sender: FDA-Public Use
  Company Number: None

PATIENT
  Age: 73 Year
  Sex: Male
  Weight: 65.8 kg

DRUGS (3)
  1. BEVACIZUMAB [Suspect]
  2. IRINOTECAN (CPT-484 MG 11, CAMPTOSAR) [Suspect]
  3. OXALIPLATIN [Suspect]

REACTIONS (1)
  - Fatigue [None]
